FAERS Safety Report 23443038 (Version 2)
Quarter: 2024Q1

REPORT INFORMATION
  Report Type: Spontaneous
  Country: BE (occurrence: BE)
  Receive Date: 20240125
  Receipt Date: 20240221
  Transmission Date: 20240410
  Serious: Yes (Other)
  Sender: FDA-Public Use
  Company Number: BE-PFIZER INC-202400022483

PATIENT
  Age: 79 Year
  Sex: Male
  Weight: 71 kg

DRUGS (1)
  1. VYNDAQEL [Suspect]
     Active Substance: TAFAMIDIS MEGLUMINE
     Indication: Cardiac amyloidosis
     Dosage: UNK

REACTIONS (2)
  - Renal impairment [Unknown]
  - Glomerular filtration rate decreased [Unknown]
